FAERS Safety Report 24763010 (Version 1)
Quarter: 2024Q4

REPORT INFORMATION
  Report Type: Spontaneous
  Country: DE (occurrence: DE)
  Receive Date: 20241222
  Receipt Date: 20241222
  Transmission Date: 20250115
  Serious: Yes (Other)
  Sender: AUROBINDO
  Company Number: DE-TEVA-VS-3271481

PATIENT
  Sex: Male

DRUGS (3)
  1. MIRTAZAPINE [Suspect]
     Active Substance: MIRTAZAPINE
     Indication: Sleep disorder
     Dosage: 30 MILLIGRAM, ONCE A DAY
     Route: 048
     Dates: start: 2024
  2. TAMSULOSIN [Concomitant]
     Active Substance: TAMSULOSIN
     Indication: Product used for unknown indication
     Dosage: UNK
     Route: 065
  3. IBUPROFEN [Concomitant]
     Active Substance: IBUPROFEN
     Indication: Pain
     Dosage: UNK
     Route: 065

REACTIONS (13)
  - Polyneuropathy [Recovered/Resolved]
  - Surgery [Unknown]
  - Abnormal loss of weight [Recovering/Resolving]
  - Dermatitis [Recovering/Resolving]
  - Erythema [Recovered/Resolved]
  - Fluid imbalance [Recovering/Resolving]
  - Neuralgia [Recovering/Resolving]
  - Prostatomegaly [Unknown]
  - Pollakiuria [Unknown]
  - Pain in extremity [Recovering/Resolving]
  - Restlessness [Recovering/Resolving]
  - Temperature intolerance [Recovering/Resolving]
  - Withdrawal syndrome [Not Recovered/Not Resolved]
